FAERS Safety Report 24197701 (Version 2)
Quarter: 2024Q3

REPORT INFORMATION
  Report Type: Spontaneous
  Country: US (occurrence: US)
  Receive Date: 20240811
  Receipt Date: 20240927
  Transmission Date: 20241017
  Serious: Yes (Hospitalization)
  Sender: SANOFI AVENTIS
  Company Number: US-SA-SAC20240807001502

PATIENT
  Age: 67 Year
  Sex: Female
  Weight: 74 kg

DRUGS (11)
  1. DUPIXENT [Suspect]
     Active Substance: DUPILUMAB
     Indication: Psoriasis
     Dosage: 300 MG, QOW
     Route: 058
     Dates: start: 20240705
  2. DUPIXENT [Suspect]
     Active Substance: DUPILUMAB
     Indication: Dermatitis atopic
  3. DUPIXENT [Suspect]
     Active Substance: DUPILUMAB
     Indication: Gastrooesophageal reflux disease
  4. DUPIXENT [Suspect]
     Active Substance: DUPILUMAB
     Indication: Lumbar radiculopathy
  5. DUPIXENT [Suspect]
     Active Substance: DUPILUMAB
     Indication: Major depression
  6. DUPIXENT [Suspect]
     Active Substance: DUPILUMAB
     Indication: Nasal polyps
  7. DUPIXENT [Suspect]
     Active Substance: DUPILUMAB
     Indication: Rhinitis allergic
  8. DUPIXENT [Suspect]
     Active Substance: DUPILUMAB
     Indication: Insomnia
  9. DUPIXENT [Suspect]
     Active Substance: DUPILUMAB
     Indication: Essential hypertension
  10. DUPIXENT [Suspect]
     Active Substance: DUPILUMAB
     Indication: Plasma cell myeloma
  11. POMALYST [Concomitant]
     Active Substance: POMALIDOMIDE
     Dosage: UNK

REACTIONS (8)
  - Diarrhoea [Unknown]
  - Dehydration [Unknown]
  - Blood potassium decreased [Unknown]
  - Vomiting [Unknown]
  - Nasopharyngitis [Unknown]
  - Back pain [Recovered/Resolved]
  - Gait inability [Recovered/Resolved]
  - Product use in unapproved indication [Unknown]

NARRATIVE: CASE EVENT DATE: 20240101
